FAERS Safety Report 18293458 (Version 1)
Quarter: 2020Q3

REPORT INFORMATION
  Report Type: Spontaneous
  Country: US (occurrence: US)
  Receive Date: 20200922
  Receipt Date: 20200922
  Transmission Date: 20201103
  Serious: No
  Sender: FDA-Public Use
  Company Number: US-DRREDDYS-USA/USA/20/0126941

PATIENT
  Age: 46 Year
  Sex: Female

DRUGS (2)
  1. ISOTRETINOIN NOT OTHERWISE SPECIFIED [Suspect]
     Active Substance: ISOTRETINOIN
     Indication: LICHEN PLANUS
     Route: 065
  2. ISOTRETINOIN NOT OTHERWISE SPECIFIED [Suspect]
     Active Substance: ISOTRETINOIN
     Indication: ERYTHEMA DYSCHROMICUM PERSTANS
     Dosage: EVERY OTHER DAY

REACTIONS (2)
  - Cheilitis [Unknown]
  - Xerosis [Unknown]
